FAERS Safety Report 11818155 (Version 3)
Quarter: 2017Q2

REPORT INFORMATION
  Report Type: Spontaneous
  Country: US (occurrence: US)
  Receive Date: 20151210
  Receipt Date: 20170406
  Transmission Date: 20170829
  Serious: No
  Sender: FDA-Public Use
  Company Number: US-JNJFOC-20151118252

PATIENT
  Age: 8 Year
  Sex: Male

DRUGS (18)
  1. RISPERDAL [Suspect]
     Active Substance: RISPERIDONE
     Indication: TIC
     Route: 048
     Dates: start: 20020809, end: 20030521
  2. RISPERDAL [Suspect]
     Active Substance: RISPERIDONE
     Indication: ATTENTION DEFICIT/HYPERACTIVITY DISORDER
     Route: 048
     Dates: start: 20020809, end: 20030521
  3. RISPERDAL [Suspect]
     Active Substance: RISPERIDONE
     Indication: TRICHOTILLOMANIA
     Route: 048
     Dates: start: 20020809, end: 20030521
  4. RISPERDAL [Suspect]
     Active Substance: RISPERIDONE
     Indication: TRICHOTILLOMANIA
     Route: 048
     Dates: start: 20080422, end: 20080621
  5. RISPERDAL [Suspect]
     Active Substance: RISPERIDONE
     Indication: TIC
     Route: 048
     Dates: start: 20050726, end: 20051117
  6. RISPERDAL [Suspect]
     Active Substance: RISPERIDONE
     Indication: ATTENTION DEFICIT/HYPERACTIVITY DISORDER
     Route: 048
     Dates: start: 20080428, end: 20080825
  7. RISPERDAL [Suspect]
     Active Substance: RISPERIDONE
     Indication: ATTENTION DEFICIT/HYPERACTIVITY DISORDER
     Route: 048
     Dates: start: 20050509, end: 20051107
  8. RISPERDAL [Suspect]
     Active Substance: RISPERIDONE
     Indication: TRICHOTILLOMANIA
     Route: 048
     Dates: start: 20050509, end: 20051107
  9. RISPERDAL [Suspect]
     Active Substance: RISPERIDONE
     Indication: TIC
     Route: 048
     Dates: start: 20080428, end: 20080825
  10. RISPERDAL [Suspect]
     Active Substance: RISPERIDONE
     Indication: ATTENTION DEFICIT/HYPERACTIVITY DISORDER
     Route: 048
     Dates: start: 20080422, end: 20080621
  11. RISPERDAL [Suspect]
     Active Substance: RISPERIDONE
     Indication: TIC
     Route: 048
     Dates: start: 20050509, end: 20051107
  12. RISPERDAL [Suspect]
     Active Substance: RISPERIDONE
     Indication: TIC
     Route: 048
     Dates: start: 20080422, end: 20080621
  13. RISPERDAL [Suspect]
     Active Substance: RISPERIDONE
     Indication: ATTENTION DEFICIT/HYPERACTIVITY DISORDER
     Route: 048
     Dates: start: 20060907, end: 20061106
  14. RISPERDAL [Suspect]
     Active Substance: RISPERIDONE
     Indication: ATTENTION DEFICIT/HYPERACTIVITY DISORDER
     Route: 048
     Dates: start: 20050726, end: 20051117
  15. RISPERDAL [Suspect]
     Active Substance: RISPERIDONE
     Indication: TRICHOTILLOMANIA
     Route: 048
     Dates: start: 20050726, end: 20051117
  16. RISPERDAL [Suspect]
     Active Substance: RISPERIDONE
     Indication: TIC
     Route: 048
     Dates: start: 20060907, end: 20061106
  17. RISPERDAL [Suspect]
     Active Substance: RISPERIDONE
     Indication: TRICHOTILLOMANIA
     Route: 048
     Dates: start: 20060907, end: 20061106
  18. RISPERDAL [Suspect]
     Active Substance: RISPERIDONE
     Indication: TRICHOTILLOMANIA
     Route: 048
     Dates: start: 20080428, end: 20080825

REACTIONS (5)
  - Off label use [Unknown]
  - Gynaecomastia [Unknown]
  - Product use in unapproved indication [Unknown]
  - Increased appetite [Unknown]
  - Abnormal weight gain [Unknown]

NARRATIVE: CASE EVENT DATE: 20020809
